FAERS Safety Report 9972027 (Version 1)
Quarter: 2014Q1

REPORT INFORMATION
  Report Type: Report from Study
  Country: US (occurrence: US)
  Receive Date: 20140306
  Receipt Date: 20140306
  Transmission Date: 20141002
  Serious: No
  Sender: FDA-Public Use
  Company Number: US-ABBVIE-13P-163-1153218-00

PATIENT
  Age: 44 Year
  Sex: Female

DRUGS (7)
  1. HUMIRA [Suspect]
     Indication: RHEUMATOID ARTHRITIS
     Dates: start: 201308
  2. LEVOTHYROXINE [Concomitant]
     Indication: THYROID FUNCTION TEST ABNORMAL
     Dosage: 75 MCG DAMILY
  3. MICROGESTINE [Concomitant]
     Indication: CONTRACEPTION
     Dosage: DAILY
  4. METHOTREXATE [Concomitant]
     Indication: RHEUMATOID ARTHRITIS
     Dosage: 0.8 ML WEEKLY
  5. FOLIC ACID [Concomitant]
     Indication: PRODUCT USED FOR UNKNOWN INDICATION
     Dosage: 1 MG DAILY, EXCEPT SATURDAY WHEN TAKES METHOTREXATE INJECTION.
  6. PRAVASTATIN [Concomitant]
     Indication: BLOOD CHOLESTEROL
  7. VITAMIN D [Concomitant]
     Indication: VITAMIN D DECREASED
     Dosage: 1000 IU DAILY

REACTIONS (2)
  - Tooth disorder [Recovering/Resolving]
  - Swelling face [Recovering/Resolving]
